FAERS Safety Report 8180424-X (Version None)
Quarter: 2012Q1

REPORT INFORMATION
  Report Type: 
  Country: None (occurrence: None)
  Receive Date: 20120302
  Receipt Date: 20120220
  Transmission Date: 20120608
  Serious: Yes (Hospitalization)
  Sender: FDA-Public Use
  Company Number: JP-PFIZER INC-2012030720

PATIENT
  Age: 83 Year
  Sex: Male

DRUGS (2)
  1. ESTRACYT [Suspect]
     Indication: PROSTATE CANCER
     Dosage: 626.8 MG/DAY
     Route: 048
     Dates: start: 20110405, end: 20111122
  2. LEUPROLIDE ACETATE [Concomitant]
     Indication: PROSTATE CANCER
     Dosage: 11.25 MG/12 WEEKS
     Route: 058
     Dates: start: 20070604

REACTIONS (1)
  - GAIT DISTURBANCE [None]
